FAERS Safety Report 10723780 (Version 1)
Quarter: 2015Q1

REPORT INFORMATION
  Report Type: Spontaneous
  Country: US (occurrence: None)
  Receive Date: 20150116
  Receipt Date: 20150116
  Transmission Date: 20150721
  Serious: No
  Sender: FDA-Public Use
  Company Number: None

PATIENT
  Sex: Male

DRUGS (1)
  1. BYDUREON [Suspect]
     Active Substance: EXENATIDE
     Dosage: I INJECTION WEEKLY SUBCUTANEOUS
     Route: 058

REACTIONS (1)
  - Needle issue [None]

NARRATIVE: CASE EVENT DATE: 20150112
